FAERS Safety Report 12904904 (Version 1)
Quarter: 2016Q4

REPORT INFORMATION
  Report Type: Spontaneous
  Country: JP (occurrence: JP)
  Receive Date: 20161102
  Receipt Date: 20161102
  Transmission Date: 20170207
  Serious: Yes (Hospitalization, Other)
  Sender: FDA-Public Use
  Company Number: JP-GILEAD-2016-0240438

PATIENT
  Age: 69 Year
  Sex: Male
  Weight: 43.4 kg

DRUGS (1)
  1. HARVONI [Suspect]
     Active Substance: LEDIPASVIR\SOFOSBUVIR
     Indication: PRODUCT USED FOR UNKNOWN INDICATION
     Dosage: UNK
     Route: 065
     Dates: start: 20160217, end: 20160510

REACTIONS (1)
  - Metastases to pancreas [Not Recovered/Not Resolved]

NARRATIVE: CASE EVENT DATE: 20160725
